FAERS Safety Report 9001950 (Version 2)
Quarter: 2013Q1

REPORT INFORMATION
  Report Type: Spontaneous
  Country: US (occurrence: US)
  Receive Date: 20130108
  Receipt Date: 20130118
  Transmission Date: 20140127
  Serious: No
  Sender: FDA-Public Use
  Company Number: US-009507513-1212USA010813

PATIENT
  Sex: Female

DRUGS (8)
  1. VICTRELIS [Suspect]
     Indication: CHRONIC HEPATITIS C
     Dosage: 800 MG, TID
     Route: 048
  2. PEGASYS [Suspect]
     Dosage: 180 MICROGRAM, QW
     Route: 058
  3. RIBASPHERE [Suspect]
     Dosage: 400 MG IN MORNING, 200 MG IN EVENING
     Route: 048
  4. SINGULAIR [Concomitant]
  5. DIOVAN [Concomitant]
  6. ASACOL [Concomitant]
  7. ADVAIR [Concomitant]
  8. ALBUTEROL [Concomitant]

REACTIONS (1)
  - Adverse event [Unknown]
